FAERS Safety Report 10522885 (Version 2)
Quarter: 2014Q4

REPORT INFORMATION
  Report Type: Spontaneous
  Country: JP (occurrence: None)
  Receive Date: 20141010
  Receipt Date: 20141205
  Transmission Date: 20150528
  Serious: Yes (Death, Hospitalization)
  Sender: FDA-Public Use
  Company Number: JP-017274

PATIENT
  Age: 87 Year
  Sex: Male
  Weight: 43 kg

DRUGS (6)
  1. CALCIUM LACTATE [Concomitant]
     Active Substance: CALCIUM LACTATE
  2. CASODEX [Concomitant]
     Active Substance: BICALUTAMIDE
  3. LEUPLIN [Concomitant]
     Active Substance: LEUPROLIDE ACETATE
  4. LOXONIN [Concomitant]
     Active Substance: LOXOPROFEN SODIUM
  5. EDIROL [Concomitant]
     Active Substance: ELDECALCITOL
  6. DEGARELIX [Suspect]
     Active Substance: DEGARELIX
     Indication: PROSTATE CANCER
     Route: 058
     Dates: start: 20130731, end: 20130731

REACTIONS (1)
  - Death [None]

NARRATIVE: CASE EVENT DATE: 20131207
